FAERS Safety Report 4990718-4 (Version None)
Quarter: 2006Q2

REPORT INFORMATION
  Report Type: 
  Country: None (occurrence: None)
  Receive Date: 20060428
  Receipt Date: 20060419
  Transmission Date: 20061013
  Serious: Yes (Death)
  Sender: FDA-Public Use
  Company Number: GB200604003117

PATIENT
  Sex: 0

DRUGS (1)
  1. STRATTERA [Suspect]
     Dosage: TRANSPLACENTAL
     Route: 064
     Dates: end: 20050901

REACTIONS (2)
  - DRUG EXPOSURE DURING PREGNANCY [None]
  - STILLBIRTH [None]
